FAERS Safety Report 12674495 (Version 1)
Quarter: 2016Q3

REPORT INFORMATION
  Report Type: Spontaneous
  Country: US (occurrence: US)
  Receive Date: 20160822
  Receipt Date: 20160822
  Transmission Date: 20161109
  Serious: No
  Sender: FDA-Public Use
  Company Number: US-BEH-2015056421

PATIENT
  Age: 54 Year
  Sex: Female
  Weight: 151.5 kg

DRUGS (39)
  1. FLONASE [Concomitant]
     Active Substance: FLUTICASONE PROPIONATE
  2. DIAZEPAM. [Concomitant]
     Active Substance: DIAZEPAM
  3. ONDANSETRON [Concomitant]
     Active Substance: ONDANSETRON
  4. PREDNISONE. [Concomitant]
     Active Substance: PREDNISONE
  5. PROAIR HFA [Concomitant]
     Active Substance: ALBUTEROL SULFATE
  6. GABAPENTIN. [Concomitant]
     Active Substance: GABAPENTIN
  7. PROMETHAZINE [Concomitant]
     Active Substance: PROMETHAZINE\PROMETHAZINE HYDROCHLORIDE
  8. ZEMAIRA [Suspect]
     Active Substance: .ALPHA.1-PROTEINASE INHIBITOR HUMAN
     Indication: ALPHA-1 ANTI-TRYPSIN DEFICIENCY
     Route: 042
  9. LEVOCETIRIZINE [Concomitant]
     Active Substance: LEVOCETIRIZINE
  10. TIZANIDINE. [Concomitant]
     Active Substance: TIZANIDINE
  11. MUCINEX [Concomitant]
     Active Substance: GUAIFENESIN
  12. EPIPEN [Concomitant]
     Active Substance: EPINEPHRINE
  13. TRAMADOL. [Concomitant]
     Active Substance: TRAMADOL
  14. FLUTICASONE [Concomitant]
     Active Substance: FLUTICASONE\FLUTICASONE PROPIONATE
  15. TORSEMIDE. [Concomitant]
     Active Substance: TORSEMIDE
  16. ZEMAIRA [Suspect]
     Active Substance: .ALPHA.1-PROTEINASE INHIBITOR HUMAN
     Indication: CONGENITAL HIGH AIRWAY OBSTRUCTION SYNDROME
  17. NASONEX [Concomitant]
     Active Substance: MOMETASONE FUROATE
  18. DIPHENHYDRAMINE. [Concomitant]
     Active Substance: DIPHENHYDRAMINE
  19. HEPARIN [Concomitant]
     Active Substance: HEPARIN SODIUM
  20. LMX [Concomitant]
     Active Substance: LIDOCAINE
  21. BUMETANIDE. [Concomitant]
     Active Substance: BUMETANIDE
  22. FIORICET [Concomitant]
     Active Substance: ACETAMINOPHEN\BUTALBITAL\CAFFEINE
  23. ACETAMINOPHEN. [Concomitant]
     Active Substance: ACETAMINOPHEN
  24. ZEMAIRA [Suspect]
     Active Substance: .ALPHA.1-PROTEINASE INHIBITOR HUMAN
     Indication: ENZYME ABNORMALITY
  25. ROPINIROLE. [Concomitant]
     Active Substance: ROPINIROLE
  26. WELLBUTRIN XL [Concomitant]
     Active Substance: BUPROPION HYDROCHLORIDE
  27. DICYCLOMINE [Concomitant]
     Active Substance: DICYCLOMINE HYDROCHLORIDE
  28. IBUPROFEN. [Concomitant]
     Active Substance: IBUPROFEN
  29. FLORANEX [Concomitant]
     Active Substance: LACTOBACILLUS ACIDOPHILUS\LACTOBACILLUS DELBRUECKII SUBSP. BULGARICUS
  30. VALIUM [Concomitant]
     Active Substance: DIAZEPAM
  31. ALBUTEROL. [Concomitant]
     Active Substance: ALBUTEROL
  32. HYDROCODONE BITARTRATE AND ACETAMINOPHEN [Concomitant]
     Active Substance: ACETAMINOPHEN\HYDROCODONE BITARTRATE
  33. LOSARTAN. [Concomitant]
     Active Substance: LOSARTAN
  34. SODIUM CHLORIDE. [Concomitant]
     Active Substance: SODIUM CHLORIDE
  35. PROZAC [Concomitant]
     Active Substance: FLUOXETINE HYDROCHLORIDE
  36. OXYGEN. [Concomitant]
     Active Substance: OXYGEN
  37. BYSTOLIC [Concomitant]
     Active Substance: NEBIVOLOL HYDROCHLORIDE
  38. NYSTATIN. [Concomitant]
     Active Substance: NYSTATIN
  39. SPIRIVA [Concomitant]
     Active Substance: TIOTROPIUM BROMIDE MONOHYDRATE

REACTIONS (4)
  - Nasopharyngitis [Unknown]
  - Fall [Unknown]
  - Pain [Unknown]
  - Balance disorder [Unknown]

NARRATIVE: CASE EVENT DATE: 20151127
